FAERS Safety Report 7236580-0 (Version None)
Quarter: 2011Q1

REPORT INFORMATION
  Report Type: 
  Country: None (occurrence: None)
  Receive Date: 20110120
  Receipt Date: 20110117
  Transmission Date: 20110831
  Serious: Yes (Life-Threatening)
  Sender: FDA-Public Use
  Company Number: PH-PFIZER INC-2011010647

PATIENT
  Age: 56 Year
  Sex: Male

DRUGS (4)
  1. DILANTIN [Suspect]
     Indication: CONVULSION PROPHYLAXIS
     Dosage: UNK
  2. CEFEPIME [Concomitant]
     Dosage: UNK
  3. PIPERACILLIN AND TAZOBACTAM [Concomitant]
     Dosage: UNK
  4. VALPROIC ACID [Concomitant]
     Dosage: UNK

REACTIONS (1)
  - HYPERSENSITIVITY [None]
